FAERS Safety Report 12672102 (Version 1)
Quarter: 2016Q3

REPORT INFORMATION
  Report Type: Spontaneous
  Country: US (occurrence: None)
  Receive Date: 20160819
  Receipt Date: 20160819
  Transmission Date: 20161109
  Serious: Yes (Other)
  Sender: FDA-Public Use
  Company Number: None

PATIENT
  Age: 42 Year
  Sex: Female

DRUGS (1)
  1. AMPYRA [Suspect]
     Active Substance: DALFAMPRIDINE
     Indication: MULTIPLE SCLEROSIS
     Route: 048
     Dates: start: 20160719

REACTIONS (5)
  - Bacterial test positive [None]
  - White blood cells urine positive [None]
  - Neutrophil count decreased [None]
  - Urine analysis abnormal [None]
  - White blood cell count decreased [None]

NARRATIVE: CASE EVENT DATE: 20160707
